FAERS Safety Report 13131936 (Version 1)
Quarter: 2017Q1

REPORT INFORMATION
  Report Type: Spontaneous
  Country: US (occurrence: US)
  Receive Date: 20170119
  Receipt Date: 20170119
  Transmission Date: 20170428
  Serious: No
  Sender: FDA-Public Use
  Company Number: US-WATSON-2016-06638

PATIENT
  Sex: Female

DRUGS (1)
  1. ALBUTEROL SULFATE-IPRATROPIUM BROMIDE (WATSON LABORATORIES) [Suspect]
     Active Substance: ALBUTEROL SULFATE\IPRATROPIUM BROMIDE
     Indication: ASTHMA
     Dosage: 0.5MG/3MG/3ML, 3-4 TIMES DAILY
     Route: 055

REACTIONS (1)
  - Asthma [Recovered/Resolved]
